FAERS Safety Report 7035632-8 (Version None)
Quarter: 2010Q4

REPORT INFORMATION
  Report Type: 
  Country: None (occurrence: None)
  Receive Date: 20101008
  Receipt Date: 20100930
  Transmission Date: 20110411
  Serious: Yes (Disabling, Other)
  Sender: FDA-Public Use
  Company Number: US-JNJFOC-20100905022

PATIENT
  Sex: Female
  Weight: 81.65 kg

DRUGS (1)
  1. ELMIRON [Suspect]
     Indication: CYSTITIS INTERSTITIAL
     Route: 048

REACTIONS (4)
  - ALOPECIA [None]
  - INCORRECT DOSE ADMINISTERED [None]
  - PRE-EXISTING DISEASE [None]
  - URINARY TRACT INFECTION [None]
